FAERS Safety Report 18791430 (Version 2)
Quarter: 2021Q1

REPORT INFORMATION
  Report Type: Spontaneous
  Country: GB (occurrence: GB)
  Receive Date: 20210127
  Receipt Date: 20210128
  Transmission Date: 20210419
  Serious: Yes (Death, Hospitalization, Other)
  Sender: FDA-Public Use
  Company Number: GB-ABBVIE-21K-167-3745513-00

PATIENT
  Age: 53 Year
  Sex: Female

DRUGS (3)
  1. HUMIRA [Suspect]
     Active Substance: ADALIMUMAB
     Route: 058
     Dates: start: 2019
  2. HUMIRA [Suspect]
     Active Substance: ADALIMUMAB
     Indication: PRODUCT USED FOR UNKNOWN INDICATION
     Route: 058
     Dates: end: 201905
  3. IMRALDI [Suspect]
     Active Substance: ADALIMUMAB
     Indication: PRODUCT USED FOR UNKNOWN INDICATION
     Route: 065
     Dates: start: 201905, end: 2019

REACTIONS (8)
  - Malaise [Unknown]
  - Death [Fatal]
  - Blindness [Unknown]
  - Arthritis [Unknown]
  - COVID-19 [Unknown]
  - Hepatic neoplasm [Unknown]
  - Drug ineffective [Unknown]
  - Unevaluable event [Recovering/Resolving]

NARRATIVE: CASE EVENT DATE: 2019
